FAERS Safety Report 9156596 (Version 1)
Quarter: 2013Q1

REPORT INFORMATION
  Report Type: Spontaneous
  Country: NO (occurrence: None)
  Receive Date: 20130208
  Receipt Date: 20130208
  Transmission Date: 20140127
  Serious: Yes (Other)
  Sender: FDA-Public Use
  Company Number: 2013-01922

PATIENT
  Age: 68 Year
  Sex: Female

DRUGS (2)
  1. LANSOPRAZOLE (UNKNOWN) (LANSOPRAZOLE) UNK, UNKUNK [Suspect]
     Indication: PRODUCT USED FOR UNKNOWN INDICATION
  2. PANTOPRAZOLE SODIUM [Suspect]

REACTIONS (1)
  - Carcinoid tumour of the stomach [None]
